FAERS Safety Report 6899541 (Version 4)
Quarter: 2013Q1

REPORT INFORMATION
  Report Type: Spontaneous
  Country: US (occurrence: US)
  Receive Date: 20090203
  Receipt Date: 20130204
  Transmission Date: 20140127
  Serious: Yes (Death, Congenital Anomaly, Other)
  Sender: FDA-Public Use
  Company Number: US-RB-009044-09

PATIENT
  Age: 1 Day
  Sex: Male
  Weight: 3.36 kg

DRUGS (4)
  1. SUBOXONE [Suspect]
     Indication: DRUG DEPENDENCE
     Route: 064
     Dates: start: 20080104
  2. TOPAMAX [Suspect]
     Indication: MIGRAINE
     Route: 064
  3. NEURONTIN [Suspect]
     Indication: MIGRAINE
     Route: 064
  4. SEROQUEL [Suspect]
     Indication: SLEEP DISORDER
     Route: 064

REACTIONS (3)
  - Foetal exposure during pregnancy [Recovered/Resolved]
  - Porencephaly [Fatal]
  - Premature baby [Recovered/Resolved]
